FAERS Safety Report 10564974 (Version 2)
Quarter: 2015Q1

REPORT INFORMATION
  Report Type: Spontaneous
  Country: IT (occurrence: IT)
  Receive Date: 20141105
  Receipt Date: 20150209
  Transmission Date: 20150720
  Serious: Yes (Hospitalization)
  Sender: FDA-Public Use
  Company Number: IT-ROCHE-1486086

PATIENT
  Age: 51 Year
  Sex: Female

DRUGS (11)
  1. PREDNISONE. [Concomitant]
     Active Substance: PREDNISONE
  2. IVABRADINE [Concomitant]
     Active Substance: IVABRADINE
  3. XOLAIR [Suspect]
     Active Substance: OMALIZUMAB
     Route: 058
     Dates: start: 20140820, end: 20140820
  4. DELTACORTENE [Concomitant]
     Active Substance: PREDNISONE
  5. SYMBICORT [Concomitant]
     Active Substance: BUDESONIDE\FORMOTEROL FUMARATE DIHYDRATE
  6. TRIMETON (CHLORPHENIRAMINE MALEATE) [Concomitant]
  7. PEPTAZOL (ITALY) [Concomitant]
  8. AERIUS (ITALY) [Concomitant]
  9. LEVOXACIN [Concomitant]
     Active Substance: LEVOFLOXACIN
  10. REPAGLINIDE. [Concomitant]
     Active Substance: REPAGLINIDE
  11. XOLAIR [Suspect]
     Active Substance: OMALIZUMAB
     Indication: ASTHMA
     Route: 058
     Dates: start: 20070528

REACTIONS (1)
  - Breast cancer [Recovered/Resolved with Sequelae]

NARRATIVE: CASE EVENT DATE: 20141023
